FAERS Safety Report 4830048-4 (Version None)
Quarter: 2005Q4

REPORT INFORMATION
  Report Type: 
  Country: None (occurrence: None)
  Receive Date: 20051115
  Receipt Date: 20051115
  Transmission Date: 20060501
  Serious: Yes (Disabling)
  Sender: FDA-Public Use
  Company Number: None

PATIENT
  Sex: Male
  Weight: 83 kg

DRUGS (7)
  1. ZOLPIDEM TARTRATE [Suspect]
     Indication: INSOMNIA
     Dosage: 10MG  QHS PO
     Route: 048
     Dates: start: 20051108, end: 20051112
  2. BUSPAR [Concomitant]
  3. DOXEPIN HCL [Concomitant]
  4. PAXIL [Concomitant]
  5. PRAZOSIN [Concomitant]
  6. ZOCOR [Concomitant]
  7. PSYLLIUM [Concomitant]

REACTIONS (3)
  - CONDITION AGGRAVATED [None]
  - HEADACHE [None]
  - INSOMNIA [None]
